FAERS Safety Report 6737640-0 (Version None)
Quarter: 2010Q2

REPORT INFORMATION
  Report Type: 
  Country: None (occurrence: None)
  Receive Date: 20100519
  Receipt Date: 20100506
  Transmission Date: 20101027
  Serious: Yes (Other)
  Sender: FDA-Public Use
  Company Number: PL-1181840

PATIENT
  Sex: Female

DRUGS (1)
  1. AZOPT [Suspect]
     Dosage: OPHTHALMIC
     Route: 047

REACTIONS (3)
  - CORNEAL EPITHELIUM DEFECT [None]
  - EYE PAIN [None]
  - OCULAR HYPERAEMIA [None]
